FAERS Safety Report 4657364-3 (Version None)
Quarter: 2005Q2

REPORT INFORMATION
  Report Type: 
  Country: None (occurrence: None)
  Receive Date: 20050331
  Receipt Date: 20050121
  Transmission Date: 20051028
  Serious: No
  Sender: FDA-Public Use
  Company Number: US109218

PATIENT
  Age: 39 Year
  Sex: Male

DRUGS (3)
  1. NEULASTA [Suspect]
     Indication: CHEMOTHERAPY
     Dosage: 6 MG
  2. METHOTREXATE [Concomitant]
  3. FOLINIC ACID [Concomitant]

REACTIONS (2)
  - ARTHRALGIA [None]
  - BONE PAIN [None]
